FAERS Safety Report 16420172 (Version 1)
Quarter: 2019Q2

REPORT INFORMATION
  Report Type: Report from Study
  Country: GB (occurrence: GB)
  Receive Date: 20190612
  Receipt Date: 20190612
  Transmission Date: 20190711
  Serious: Yes (Other)
  Sender: FDA-Public Use
  Company Number: PHHY2019GB076656

PATIENT
  Sex: Male

DRUGS (1)
  1. ERELZI [Suspect]
     Active Substance: ETANERCEPT-SZZS
     Indication: RHEUMATOID ARTHRITIS
     Dosage: 50 MG, QW (PREFILLED PEN)
     Route: 058
     Dates: start: 20190122

REACTIONS (5)
  - Blood test abnormal [Unknown]
  - Viral infection [Unknown]
  - Hepatic infection [Not Recovered/Not Resolved]
  - Bile duct stone [Unknown]
  - Cholelithiasis [Unknown]
